FAERS Safety Report 16744735 (Version 2)
Quarter: 2019Q3

REPORT INFORMATION
  Report Type: Report from Study
  Country: CA (occurrence: CA)
  Receive Date: 20190827
  Receipt Date: 20190909
  Transmission Date: 20191005
  Serious: No
  Sender: FDA-Public Use
  Company Number: CA-BEH-2019105571

PATIENT
  Age: 72 Year
  Sex: Female

DRUGS (6)
  1. BERINERT [Suspect]
     Active Substance: HUMAN C1-ESTERASE INHIBITOR
     Indication: HEREDITARY ANGIOEDEMA WITH C1 ESTERASE INHIBITOR DEFICIENCY
     Dosage: 2000 IU, ONE TO TWO TIMES PER WEEK
     Route: 058
  2. PLAVIX [Concomitant]
     Active Substance: CLOPIDOGREL BISULFATE
  3. BERINERT [Suspect]
     Active Substance: HUMAN C1-ESTERASE INHIBITOR
     Indication: HEREDITARY ANGIOEDEMA WITH C1 ESTERASE INHIBITOR DEFICIENCY
     Dosage: 2000 IU, ONE TO TWO TIMES PER WEEK
     Route: 058
  4. BERINERT [Suspect]
     Active Substance: HUMAN C1-ESTERASE INHIBITOR
     Indication: PROPHYLAXIS
  5. APO-HYDRO [Concomitant]
     Active Substance: HYDROCHLOROTHIAZIDE
  6. BERINERT [Suspect]
     Active Substance: HUMAN C1-ESTERASE INHIBITOR
     Indication: PROPHYLAXIS

REACTIONS (3)
  - No adverse event [Not Recovered/Not Resolved]
  - Off label use [Not Recovered/Not Resolved]
  - Incorrect route of product administration [Not Recovered/Not Resolved]

NARRATIVE: CASE EVENT DATE: 20190806
